FAERS Safety Report 22633985 (Version 1)
Quarter: 2023Q2

REPORT INFORMATION
  Report Type: Spontaneous
  Country: GB (occurrence: GB)
  Receive Date: 20230623
  Receipt Date: 20230623
  Transmission Date: 20230722
  Serious: Yes (Hospitalization, Other)
  Sender: FDA-Public Use
  Company Number: GB-BAXTER-2023BAX024380

PATIENT
  Age: 71 Year
  Sex: Male

DRUGS (30)
  1. CYCLOPHOSPHAMIDE [Suspect]
     Active Substance: CYCLOPHOSPHAMIDE
     Indication: Acute myeloid leukaemia recurrent
     Dosage: 900 MG
     Route: 042
     Dates: start: 20230128, end: 20230130
  2. MESNA [Suspect]
     Active Substance: MESNA
     Indication: Supportive care
     Dosage: 800 MG (400 MG, 2 IN 1 D)
     Route: 048
     Dates: start: 20230127, end: 20230127
  3. FLUDARABINE [Suspect]
     Active Substance: FLUDARABINE PHOSPHATE
     Indication: Acute myeloid leukaemia recurrent
     Dosage: 55 MG
     Route: 042
     Dates: start: 20230127, end: 20230130
  4. METFORMIN [Concomitant]
     Active Substance: METFORMIN HYDROCHLORIDE
     Indication: Type 2 diabetes mellitus
     Dosage: 1000 MG (500 MG, 2 IN 1 D)
     Route: 048
     Dates: start: 20220320
  5. METFORMIN [Concomitant]
     Active Substance: METFORMIN HYDROCHLORIDE
     Dosage: 2 GM (1 GM, 2 IN 1 D)
     Route: 048
     Dates: start: 20220327
  6. ALLOPURINOL [Concomitant]
     Active Substance: ALLOPURINOL
     Indication: Supportive care
     Dosage: 300 MG (1 IN 1 D)
     Route: 048
     Dates: start: 20230128, end: 20230208
  7. LANTUS [Concomitant]
     Active Substance: INSULIN GLARGINE
     Indication: Type 2 diabetes mellitus
     Dosage: 8 UNITS (1 IN 1 D)
     Route: 058
     Dates: start: 20230127, end: 20230128
  8. LANTUS [Concomitant]
     Active Substance: INSULIN GLARGINE
     Dosage: 10 UNITS (1 IN 1 D)
     Route: 058
     Dates: start: 20230128, end: 20230130
  9. LANTUS [Concomitant]
     Active Substance: INSULIN GLARGINE
     Dosage: 14 UNITS
     Route: 058
     Dates: start: 20230131
  10. CYCLIZINE [Concomitant]
     Active Substance: CYCLIZINE
     Indication: Supportive care
     Dosage: 150 MG (50 MG, 3 IN 1 D)
     Route: 042
  11. ACYCLOVIR [Concomitant]
     Active Substance: ACYCLOVIR
     Indication: Antiviral prophylaxis
     Dosage: 800 MG (400 MG, 2 IN 1 D)
     Route: 048
     Dates: start: 20230126
  12. ONDANSETRON [Concomitant]
     Active Substance: ONDANSETRON
     Indication: Supportive care
     Dosage: 16 MG (8 MG, 2 IN 1 D)
     Route: 048
     Dates: start: 20230127, end: 20230203
  13. CALCIUM CARBONATE\CHOLECALCIFEROL [Concomitant]
     Active Substance: CALCIUM CARBONATE\CHOLECALCIFEROL
     Indication: Supplementation therapy
     Dosage: 1 UNIT (1 IN 1 D)
     Route: 048
     Dates: start: 20230126, end: 20230201
  14. CALCIUM CARBONATE\CHOLECALCIFEROL [Concomitant]
     Active Substance: CALCIUM CARBONATE\CHOLECALCIFEROL
     Dosage: 1 UNITS, BID
     Route: 048
     Dates: start: 20230201
  15. PENICILLIN V [Concomitant]
     Active Substance: PENICILLIN V
     Indication: Prophylaxis
     Dosage: 1000 MG (500 MG, 2 IN 1 D)
     Route: 048
     Dates: start: 20230126, end: 20230129
  16. CALCIUM GLUCONATE [Concomitant]
     Active Substance: CALCIUM GLUCONATE
     Indication: Supplementation therapy
     Dosage: 10 ML (1 IN 1 D)
     Route: 042
     Dates: start: 20230128, end: 20230131
  17. ROSUVASTATIN [Concomitant]
     Active Substance: ROSUVASTATIN
     Indication: Hypercholesterolaemia
     Dosage: 20 MG (1 IN 1 D)
     Route: 048
     Dates: start: 20230127, end: 20230131
  18. FOLIC ACID [Concomitant]
     Active Substance: FOLIC ACID
     Indication: Supplementation therapy
     Dosage: 5 MG (1 IN 1 D)
     Route: 048
     Dates: start: 20230126
  19. LEVETIRACETAM [Concomitant]
     Active Substance: LEVETIRACETAM
     Indication: Supportive care
     Dosage: 1500 MG (750 MG, 2 IN 1 D)
     Route: 048
     Dates: start: 20230127, end: 20230303
  20. DOMPERIDONE [Concomitant]
     Active Substance: DOMPERIDONE
     Indication: Supportive care
     Dosage: 30 MG (10 MG, 3 IN 1 D)
     Route: 048
     Dates: start: 20230127, end: 20230207
  21. CHLORHEXIDINE [Concomitant]
     Active Substance: CHLORHEXIDINE
     Indication: Supportive care
     Dosage: 40 ML (10 ML, 4 IN 1 D)
     Route: 048
     Dates: start: 20230127, end: 20230208
  22. OMEPRAZOLE [Concomitant]
     Active Substance: OMEPRAZOLE
     Indication: Prophylaxis
     Dosage: 20 MG (1 IN 1 D)
     Route: 048
     Dates: start: 20230126
  23. NYSTATIN [Concomitant]
     Active Substance: NYSTATIN
     Indication: Antifungal prophylaxis
     Dosage: 4 ML (1 ML, 4 IN 1 D)
     Route: 048
     Dates: start: 20200514
  24. NOVORAPID [Concomitant]
     Active Substance: INSULIN ASPART
     Indication: Type 2 diabetes mellitus
     Dosage: 1 IN 1 AS REQUIRED
     Route: 058
     Dates: start: 20230126, end: 20230228
  25. COTRIMOXAZOLE [Concomitant]
     Active Substance: SULFAMETHOXAZOLE\TRIMETHOPRIM
     Indication: Infection prophylaxis
     Dosage: 960 MG, EVERY MONDAY, WEDNESDAY AND FRIDAY
     Route: 048
     Dates: start: 20230127, end: 20230208
  26. ACETAMINOPHEN [Concomitant]
     Active Substance: ACETAMINOPHEN
     Indication: Prophylaxis
     Dosage: 500-1000 MG (1 IN 1 AS REQUIRED)
     Route: 048
     Dates: start: 20230128, end: 20230208
  27. HUMAN RED BLOOD CELL [Concomitant]
     Active Substance: HUMAN RED BLOOD CELL
     Indication: Prophylaxis
     Dosage: 1 UNIT THREE TIMES
     Route: 042
     Dates: start: 20230127
  28. HUMAN RED BLOOD CELL [Concomitant]
     Active Substance: HUMAN RED BLOOD CELL
     Dosage: 2 UNITS
     Route: 042
     Dates: start: 20230129
  29. HUMAN RED BLOOD CELL [Concomitant]
     Active Substance: HUMAN RED BLOOD CELL
     Dosage: 4 UNITS
     Route: 042
     Dates: start: 20230202
  30. HUMAN RED BLOOD CELL [Concomitant]
     Active Substance: HUMAN RED BLOOD CELL
     Dosage: 2 UNITS
     Route: 042
     Dates: start: 20230207

REACTIONS (2)
  - Febrile neutropenia [Recovered/Resolved]
  - Diarrhoea [Unknown]

NARRATIVE: CASE EVENT DATE: 20230129
